FAERS Safety Report 18921054 (Version 2)
Quarter: 2021Q1

REPORT INFORMATION
  Report Type: Spontaneous
  Country: US (occurrence: US)
  Receive Date: 20210222
  Receipt Date: 20210304
  Transmission Date: 20210420
  Serious: Yes (Other)
  Sender: FDA-Public Use
  Company Number: US-PFIZER INC-2021166245

PATIENT
  Age: 40 Year
  Sex: Female

DRUGS (1)
  1. TESTOSTERONE CIPIONATE [Suspect]
     Active Substance: TESTOSTERONE
     Indication: VIRILISM
     Dosage: 60 MG, WEEKLY
     Route: 030

REACTIONS (2)
  - Hidradenitis [Recovering/Resolving]
  - Condition aggravated [Recovering/Resolving]
